FAERS Safety Report 24393458 (Version 1)
Quarter: 2024Q4

REPORT INFORMATION
  Report Type: Spontaneous
  Country: US (occurrence: None)
  Receive Date: 20241003
  Receipt Date: 20241003
  Transmission Date: 20250114
  Serious: Yes (Hospitalization)
  Sender: Public
  Company Number: None

PATIENT
  Age: 61 Year
  Sex: Female

DRUGS (11)
  1. INVEGA TRINZA [Suspect]
     Active Substance: PALIPERIDONE PALMITATE
     Indication: Schizophrenia
     Dosage: OTHER FREQUENCY : EVERY90DAYS;?
     Route: 030
  2. ALBUTEROL AER HFA [Concomitant]
  3. AMLODIPINE TAB 5MG [Concomitant]
  4. BENZONATATE CAP 200MG [Concomitant]
  5. BUPROPION TAB 200MG SR [Concomitant]
  6. CLONAZEPAM TAB 0.5MG [Concomitant]
  7. CLONAZEPAM [Concomitant]
     Active Substance: CLONAZEPAM
  8. DESVENLAFAX TAB 100MG ER [Concomitant]
  9. EPINEPHRINE INJ 0.3MG [Concomitant]
  10. ESCITALOPRAM TAB 5MG [Concomitant]
  11. ESTRADIOL TAB 1 MG [Concomitant]

REACTIONS (3)
  - Fall [None]
  - Blood sodium decreased [None]
  - Therapy cessation [None]

NARRATIVE: CASE EVENT DATE: 20240701
